FAERS Safety Report 21055739 (Version 2)
Quarter: 2022Q3

REPORT INFORMATION
  Report Type: Spontaneous
  Country: CZ (occurrence: None)
  Receive Date: 20220708
  Receipt Date: 20220905
  Transmission Date: 20221027
  Serious: Yes (Hospitalization, Other)
  Sender: FDA-Public Use
  Company Number: CZ-Merck Healthcare KGaA-9334450

PATIENT
  Sex: Female

DRUGS (1)
  1. REBIF [Suspect]
     Active Substance: INTERFERON BETA-1A
     Indication: Relapsing-remitting multiple sclerosis
     Route: 058
     Dates: start: 202205, end: 202206

REACTIONS (2)
  - Liver disorder [Recovering/Resolving]
  - Autoimmune hepatitis [Recovering/Resolving]
